FAERS Safety Report 21342961 (Version 1)
Quarter: 2022Q3

REPORT INFORMATION
  Report Type: Spontaneous
  Country: US (occurrence: None)
  Receive Date: 20220916
  Receipt Date: 20220916
  Transmission Date: 20221026
  Serious: No
  Sender: FDA-Public Use
  Company Number: None

PATIENT
  Age: 73 Year
  Sex: Male

DRUGS (1)
  1. PROPRANOLOL HYDROCHLORIDE [Suspect]
     Active Substance: PROPRANOLOL HYDROCHLORIDE
     Dates: start: 20220823

REACTIONS (4)
  - Headache [None]
  - Memory impairment [None]
  - Therapy interrupted [None]
  - Therapy cessation [None]

NARRATIVE: CASE EVENT DATE: 20220823
